FAERS Safety Report 9847827 (Version 1)
Quarter: 2014Q1

REPORT INFORMATION
  Report Type: Spontaneous
  Country: US (occurrence: US)
  Receive Date: 20140128
  Receipt Date: 20140128
  Transmission Date: 20141002
  Serious: No
  Sender: FDA-Public Use
  Company Number: US-BIOGENIDEC-2014BI006760

PATIENT
  Sex: Female

DRUGS (6)
  1. TECFIDERA [Suspect]
     Indication: MULTIPLE SCLEROSIS
     Route: 048
     Dates: start: 20131107
  2. CLONAZEPAM [Concomitant]
  3. CYMBALTA [Concomitant]
  4. HYDROCODONE-ACETAMINOPHEN [Concomitant]
  5. PRAVASTATIN SODIUM [Concomitant]
  6. VITAMIN D3 [Concomitant]

REACTIONS (1)
  - Headache [Unknown]
